FAERS Safety Report 5974865-6 (Version None)
Quarter: 2008Q4

REPORT INFORMATION
  Report Type: 
  Country: None (occurrence: None)
  Receive Date: 20081202
  Receipt Date: 20081125
  Transmission Date: 20090506
  Serious: No
  Sender: FDA-Public Use
  Company Number: JP-PFIZER INC-2008097577

PATIENT
  Age: 6 Year
  Sex: Male

DRUGS (1)
  1. GABAPEN [Suspect]
     Indication: EPILEPSY
     Route: 048

REACTIONS (1)
  - AGITATION [None]
